FAERS Safety Report 24248338 (Version 1)
Quarter: 2024Q3

REPORT INFORMATION
  Report Type: Spontaneous
  Country: US (occurrence: US)
  Receive Date: 20240826
  Receipt Date: 20240826
  Transmission Date: 20241017
  Serious: Yes (Hospitalization)
  Sender: APOTEX
  Company Number: US-APOTEX-2024AP009599

PATIENT
  Age: 7 Year
  Sex: Female

DRUGS (1)
  1. AMOXICILLIN\CLAVULANATE POTASSIUM [Suspect]
     Active Substance: AMOXICILLIN\CLAVULANATE POTASSIUM
     Indication: Soft tissue infection
     Dosage: UNK
     Route: 065

REACTIONS (2)
  - Drug intolerance [Recovered/Resolved]
  - Vomiting [Recovered/Resolved]
